FAERS Safety Report 12310195 (Version 14)
Quarter: 2019Q3

REPORT INFORMATION
  Report Type: Spontaneous
  Country: CA (occurrence: CA)
  Receive Date: 20160427
  Receipt Date: 20190916
  Transmission Date: 20191004
  Serious: Yes (Other)
  Sender: FDA-Public Use
  Company Number: CA-CELGENEUS-CAN-2015122905

PATIENT
  Age: 60 Year
  Sex: Female
  Weight: 57 kg

DRUGS (9)
  1. ADVIL [Concomitant]
     Active Substance: IBUPROFEN
     Indication: PRODUCT USED FOR UNKNOWN INDICATION
     Route: 065
  2. CAMPHOR [Concomitant]
     Active Substance: CAMPHOR
     Indication: PRODUCT USED FOR UNKNOWN INDICATION
     Route: 061
  3. ISTODAX [Suspect]
     Active Substance: ROMIDEPSIN
     Dosage: 17 MILLIGRAM
     Route: 041
     Dates: start: 201604
  4. ISTODAX [Suspect]
     Active Substance: ROMIDEPSIN
     Indication: PERIPHERAL T-CELL LYMPHOMA UNSPECIFIED
     Dosage: 22 MILLIGRAM
     Route: 041
     Dates: start: 20151203
  5. NORMAL SALINE [Concomitant]
     Active Substance: SODIUM CHLORIDE
     Indication: PRODUCT USED FOR UNKNOWN INDICATION
     Route: 065
  6. GRAVOL [Concomitant]
     Active Substance: DIMENHYDRINATE
     Indication: PRODUCT USED FOR UNKNOWN INDICATION
     Route: 065
  7. PREDNISONE. [Concomitant]
     Active Substance: PREDNISONE
     Indication: PRODUCT USED FOR UNKNOWN INDICATION
     Route: 065
  8. ALLOPURINOL. [Concomitant]
     Active Substance: ALLOPURINOL
     Indication: PRODUCT USED FOR UNKNOWN INDICATION
     Route: 065
  9. ARISTOCORT [Concomitant]
     Active Substance: TRIAMCINOLONE DIACETATE
     Indication: PRODUCT USED FOR UNKNOWN INDICATION
     Route: 061

REACTIONS (40)
  - Platelet count decreased [Unknown]
  - Rash generalised [Recovered/Resolved]
  - Muscle spasms [Unknown]
  - Skin burning sensation [Not Recovered/Not Resolved]
  - Dyspnoea exertional [Unknown]
  - Scleral haemorrhage [Not Recovered/Not Resolved]
  - Gingival bleeding [Unknown]
  - Fatigue [Unknown]
  - Influenza like illness [Recovered/Resolved]
  - Pruritus [Unknown]
  - Erythema [Unknown]
  - Drug ineffective [Unknown]
  - Neck pain [Not Recovered/Not Resolved]
  - Stomatitis [Recovered/Resolved]
  - Epistaxis [Not Recovered/Not Resolved]
  - Hot flush [Recovered/Resolved]
  - Subcutaneous abscess [Recovered/Resolved]
  - Chest discomfort [Unknown]
  - Blood pressure diastolic decreased [Unknown]
  - Skin discolouration [Unknown]
  - Eye swelling [Unknown]
  - Eye haemorrhage [Unknown]
  - Swelling face [Unknown]
  - Body temperature decreased [Unknown]
  - Anxiety [Recovering/Resolving]
  - Oxygen saturation decreased [Unknown]
  - Skin irritation [Recovering/Resolving]
  - Haematochezia [Recovered/Resolved]
  - Blood urine present [Unknown]
  - Palpitations [Unknown]
  - Skin fissures [Recovering/Resolving]
  - Stomatitis [Not Recovered/Not Resolved]
  - Pruritus [Unknown]
  - Asthenia [Unknown]
  - Pain in extremity [Unknown]
  - Skin discolouration [Unknown]
  - Contusion [Not Recovered/Not Resolved]
  - Alopecia [Not Recovered/Not Resolved]
  - Blood test abnormal [Unknown]
  - Nausea [Recovering/Resolving]

NARRATIVE: CASE EVENT DATE: 2015
